FAERS Safety Report 13661169 (Version 1)
Quarter: 2017Q2

REPORT INFORMATION
  Report Type: Spontaneous
  Country: US (occurrence: US)
  Receive Date: 20170616
  Receipt Date: 20170616
  Transmission Date: 20170830
  Serious: No
  Sender: FDA-Public Use
  Company Number: US-US WORLDMEDS, LLC-USW201703-000483

PATIENT
  Age: 53 Year
  Sex: Female
  Weight: 72.57 kg

DRUGS (4)
  1. SINEMET [Concomitant]
     Active Substance: CARBIDOPA\LEVODOPA
     Indication: PARKINSON^S DISEASE
  2. APOKYN [Suspect]
     Active Substance: APOMORPHINE HYDROCHLORIDE
     Indication: PARKINSON^S DISEASE
     Dates: start: 20170312
  3. AMANTADINE. [Concomitant]
     Active Substance: AMANTADINE HYDROCHLORIDE
     Indication: PARKINSON^S DISEASE
  4. BACLAN [Concomitant]
     Indication: PARKINSON^S DISEASE

REACTIONS (4)
  - Pain [Unknown]
  - Muscle spasms [Unknown]
  - Insomnia [Unknown]
  - Dystonia [Unknown]

NARRATIVE: CASE EVENT DATE: 20170327
